FAERS Safety Report 17349780 (Version 4)
Quarter: 2022Q1

REPORT INFORMATION
  Report Type: Report from Study
  Country: UG (occurrence: UG)
  Receive Date: 20200130
  Receipt Date: 20220221
  Transmission Date: 20220423
  Serious: Yes (Other)
  Sender: FDA-Public Use
  Company Number: UG-VIIV HEALTHCARE LIMITED-UG2019GSK177541

PATIENT
  Age: 17 Year
  Sex: Female
  Weight: 50.2 kg

DRUGS (15)
  1. DOLUTEGRAVIR [Suspect]
     Active Substance: DOLUTEGRAVIR
     Indication: HIV infection
     Dosage: 50 MG, U
     Route: 048
     Dates: start: 20171120, end: 20180130
  2. DOLUTEGRAVIR [Suspect]
     Active Substance: DOLUTEGRAVIR
     Dosage: UNK
     Route: 048
     Dates: start: 20180209, end: 20190823
  3. DOLUTEGRAVIR [Suspect]
     Active Substance: DOLUTEGRAVIR
     Dosage: UNK
     Route: 048
     Dates: start: 20190910, end: 20200611
  4. ATAZANAVIR\RITONAVIR [Concomitant]
     Active Substance: ATAZANAVIR\RITONAVIR
     Indication: HIV infection
     Dosage: 300/100MG
     Dates: start: 20200612
  5. TENOFOVIR [Concomitant]
     Active Substance: TENOFOVIR
     Indication: HIV infection
     Dosage: 300 MG, U
     Route: 048
     Dates: start: 20171120, end: 20180130
  6. TENOFOVIR [Concomitant]
     Active Substance: TENOFOVIR
     Dosage: UNK
     Route: 048
     Dates: start: 20180209, end: 20190823
  7. TENOFOVIR [Concomitant]
     Active Substance: TENOFOVIR
     Dosage: UNK
     Route: 048
     Dates: start: 20190910
  8. LAMIVUDINE [Concomitant]
     Active Substance: LAMIVUDINE
     Indication: HIV infection
     Dosage: 300 MG, U
     Route: 048
     Dates: start: 20171120, end: 20180130
  9. LAMIVUDINE [Concomitant]
     Active Substance: LAMIVUDINE
     Dosage: UNK
     Route: 048
     Dates: start: 20180209, end: 20190823
  10. LAMIVUDINE [Concomitant]
     Active Substance: LAMIVUDINE
     Dosage: UNK
     Route: 048
     Dates: start: 20190910
  11. COARTEM [Concomitant]
     Active Substance: ARTEMETHER\LUMEFANTRINE
     Indication: Product used for unknown indication
     Dosage: UNK
     Dates: start: 20180607, end: 20180610
  12. PROGESTERONE IMPLANT [Concomitant]
     Indication: Contraception
     Dosage: UNK
     Dates: start: 20171117
  13. ARTESUNATE [Concomitant]
     Active Substance: ARTESUNATE
     Indication: Product used for unknown indication
     Dosage: UNK
     Dates: start: 20180607, end: 20180608
  14. COTRIMOXAZOLE [Concomitant]
     Active Substance: SULFAMETHOXAZOLE\TRIMETHOPRIM
     Indication: Product used for unknown indication
     Dosage: UNK
     Dates: start: 20171117
  15. ACETAMINOPHEN [Concomitant]
     Active Substance: ACETAMINOPHEN
     Indication: Product used for unknown indication
     Dosage: UNK
     Dates: start: 20180607, end: 20180608

REACTIONS (2)
  - Intentional self-injury [Not Recovered/Not Resolved]
  - Major depression [Recovered/Resolved]

NARRATIVE: CASE EVENT DATE: 20180615
